FAERS Safety Report 11185746 (Version 1)
Quarter: 2015Q2

REPORT INFORMATION
  Report Type: Spontaneous
  Country: TW (occurrence: TW)
  Receive Date: 20150612
  Receipt Date: 20150612
  Transmission Date: 20150821
  Serious: Yes (Other)
  Sender: FDA-Public Use
  Company Number: TW-GLAXOSMITHKLINE-TW2015GSK079983

PATIENT
  Age: 24 Year
  Sex: Male

DRUGS (2)
  1. IPRATROPIUM BROMIDE. [Concomitant]
     Active Substance: IPRATROPIUM BROMIDE
     Indication: ASTHMA
     Dosage: UNK
  2. SALBUTAMOL [Suspect]
     Active Substance: ALBUTEROL
     Indication: ASTHMA
     Dosage: 5 MG, UNK
     Route: 055

REACTIONS (11)
  - Areflexia [Unknown]
  - Left ventricular hypertrophy [Unknown]
  - Hyperkalaemia [Recovered/Resolved]
  - Tachycardia [Unknown]
  - Hyperthyroidism [Recovering/Resolving]
  - Diplegia [Unknown]
  - Basedow^s disease [Unknown]
  - Electrocardiogram U-wave abnormality [Unknown]
  - Goitre [Unknown]
  - Muscular weakness [Recovered/Resolved]
  - Thyrotoxic periodic paralysis [Unknown]
